FAERS Safety Report 8309458-9 (Version None)
Quarter: 2012Q2

REPORT INFORMATION
  Report Type: 
  Country: None (occurrence: None)
  Receive Date: 20120420
  Receipt Date: 20100505
  Transmission Date: 20120825
  Serious: Yes (Death, Hospitalization)
  Sender: FDA-Public Use
  Company Number: TPA2010A02434

PATIENT
  Age: 70 Year
  Sex: Male
  Weight: 74.3899 kg

DRUGS (3)
  1. GLIMEPIRIDE [Concomitant]
  2. LISINOPRIL [Concomitant]
  3. ACTOS [Suspect]
     Indication: TYPE 2 DIABETES MELLITUS
     Dosage: 45 MG, 1 IN 1 D, PER ORAL
     Route: 048
     Dates: start: 20091224

REACTIONS (2)
  - PNEUMONIA ESCHERICHIA [None]
  - RESPIRATORY FAILURE [None]
